FAERS Safety Report 19641256 (Version 1)
Quarter: 2021Q3

REPORT INFORMATION
  Report Type: Spontaneous
  Country: US (occurrence: US)
  Receive Date: 20210730
  Receipt Date: 20210730
  Transmission Date: 20211014
  Serious: No
  Sender: FDA-Public Use
  Company Number: US-DENTSPLY PHARMACEUTICAL-2021SCDP000112

PATIENT
  Sex: Female

DRUGS (3)
  1. BICARBONATE [Suspect]
     Active Substance: SODIUM BICARBONATE
     Indication: EPIDURAL ANAESTHESIA
     Dosage: 2 MILLILITER OF 8.4% BICARBONATE
     Route: 008
  2. LIDOCAINE HYDROCHLORIDE AND EPINEPHRINE BITARTRATE [Suspect]
     Active Substance: EPINEPHRINE BITARTRATE\LIDOCAINE HYDROCHLORIDE
     Indication: EPIDURAL ANAESTHESIA
     Dosage: UNK 2% LIDOCAINE, 150 ??G OF EPINEPHRINE
     Route: 008
  3. FENTANYL. [Suspect]
     Active Substance: FENTANYL
     Indication: EPIDURAL ANAESTHESIA
     Dosage: 100 MICROGRAM
     Route: 008

REACTIONS (1)
  - Maternal exposure during delivery [Unknown]
